FAERS Safety Report 14223300 (Version 2)
Quarter: 2017Q4

REPORT INFORMATION
  Report Type: Spontaneous
  Country: US (occurrence: US)
  Receive Date: 20171125
  Receipt Date: 20171213
  Transmission Date: 20180321
  Serious: No
  Sender: FDA-Public Use
  Company Number: US-ASTRAZENECA-2017SF19172

PATIENT
  Age: 26751 Day
  Sex: Female
  Weight: 61.2 kg

DRUGS (1)
  1. IMFINZI [Suspect]
     Active Substance: DURVALUMAB
     Indication: LUNG CARCINOMA CELL TYPE UNSPECIFIED STAGE IV
     Route: 042
     Dates: start: 20171115

REACTIONS (11)
  - Diarrhoea [Unknown]
  - Blood pressure decreased [Unknown]
  - Vomiting [Unknown]
  - Dehydration [Unknown]
  - Feeling abnormal [Unknown]
  - Somnolence [Unknown]
  - Product use in unapproved indication [Unknown]
  - Back pain [Unknown]
  - Malaise [Unknown]
  - Off label use [Unknown]
  - Neck pain [Unknown]

NARRATIVE: CASE EVENT DATE: 20171115
